FAERS Safety Report 15758903 (Version 2)
Quarter: 2019Q1

REPORT INFORMATION
  Report Type: Report from Study
  Country: None (occurrence: US)
  Receive Date: 20181225
  Receipt Date: 20190212
  Transmission Date: 20190417
  Serious: Yes (Other)
  Sender: FDA-Public Use
  Company Number: US-ABBVIE-18K-163-2600395-00

PATIENT
  Age: 69 Year
  Sex: Female
  Weight: 99.88 kg

DRUGS (4)
  1. HUMIRA [Suspect]
     Active Substance: ADALIMUMAB
     Indication: PSORIASIS
  2. PREDNISOLONE. [Concomitant]
     Active Substance: PREDNISOLONE
     Indication: PRODUCT USED FOR UNKNOWN INDICATION
  3. BROMFENAC OPHTHALMIC SOLUTION, 0.09% [Concomitant]
     Active Substance: BROMFENAC SODIUM
     Indication: INFLAMMATION
  4. HUMIRA [Suspect]
     Active Substance: ADALIMUMAB
     Indication: UVEITIS
     Route: 058
     Dates: start: 201601

REACTIONS (6)
  - Visual impairment [Recovering/Resolving]
  - Retinal detachment [Recovering/Resolving]
  - Eye swelling [Unknown]
  - Eye pain [Unknown]
  - Retinal tear [Unknown]
  - Psoriasis [Unknown]

NARRATIVE: CASE EVENT DATE: 20181207
